FAERS Safety Report 20423493 (Version 1)
Quarter: 2022Q1

REPORT INFORMATION
  Report Type: Report from Study
  Country: US (occurrence: US)
  Receive Date: 20220203
  Receipt Date: 20220203
  Transmission Date: 20220423
  Serious: Yes (Other)
  Sender: FDA-Public Use
  Company Number: US-JNJFOC-20220150633

PATIENT
  Age: 34 Year
  Sex: Female

DRUGS (3)
  1. SPRAVATO [Suspect]
     Active Substance: ESKETAMINE
     Indication: Depression
     Dosage: 6 DOSES
     Dates: start: 20210416, end: 20210625
  2. SPRAVATO [Suspect]
     Active Substance: ESKETAMINE
     Dosage: 18 DOSES
     Dates: start: 20210702, end: 20220110
  3. SPRAVATO [Suspect]
     Active Substance: ESKETAMINE
     Dates: start: 20220120, end: 20220120

REACTIONS (4)
  - Oesophageal operation [Unknown]
  - Eating disorder [Unknown]
  - Sedation [Recovered/Resolved]
  - Dissociation [Recovered/Resolved]

NARRATIVE: CASE EVENT DATE: 20220119
